FAERS Safety Report 8595685 (Version 3)
Quarter: 2012Q4

REPORT INFORMATION
  Report Type: 
  Country: US (occurrence: US)
  Receive Date: 20120604
  Receipt Date: 20121009
  Transmission Date: 20130627
  Serious: Yes (Other)
  Sender: FDA-Public Use
  Company Number: US-BAYER-2012-054926

PATIENT
  Age: 50 Year
  Sex: Female
  Weight: 71.66 kg

DRUGS (1)
  1. MIRENA [Suspect]
     Indication: CONTRACEPTION
     Dosage: 20 mcg/24hr, CONT
     Route: 015
     Dates: start: 20110321

REACTIONS (4)
  - Device dislocation [None]
  - Device dislocation [None]
  - Device dislocation [None]
  - Ovarian cyst [None]
